FAERS Safety Report 10328662 (Version 1)
Quarter: 2014Q3

REPORT INFORMATION
  Report Type: Spontaneous
  Country: US (occurrence: US)
  Receive Date: 20140721
  Receipt Date: 20140721
  Transmission Date: 20150326
  Serious: Yes (Hospitalization, Other)
  Sender: FDA-Public Use
  Company Number: US-SA-2014SA094398

PATIENT

DRUGS (2)
  1. LANTUS [Suspect]
     Active Substance: INSULIN GLARGINE
     Indication: PRODUCT USED FOR UNKNOWN INDICATION
     Route: 065
  2. HUMULIN NOS [Concomitant]
     Active Substance: INSULIN HUMAN

REACTIONS (6)
  - Aggression [Unknown]
  - Contusion [Unknown]
  - Amnesia [Unknown]
  - Convulsion [Unknown]
  - Blood glucose decreased [Unknown]
  - Extra dose administered [Unknown]
